FAERS Safety Report 18723684 (Version 1)
Quarter: 2021Q1

REPORT INFORMATION
  Report Type: Spontaneous
  Country: US (occurrence: US)
  Receive Date: 20210108
  Receipt Date: 20210108
  Transmission Date: 20210419
  Serious: No
  Sender: FDA-Public Use
  Company Number: None

PATIENT
  Age: 50 Year
  Sex: Female
  Weight: 72 kg

DRUGS (1)
  1. DYSPORT [Suspect]
     Active Substance: ABOBOTULINUMTOXINA
     Indication: SKIN COSMETIC PROCEDURE

REACTIONS (6)
  - Paraesthesia [None]
  - Arthralgia [None]
  - Skin tightness [None]
  - Myalgia [None]
  - Neck pain [None]
  - Back pain [None]

NARRATIVE: CASE EVENT DATE: 20201230
